FAERS Safety Report 8878961 (Version 1)
Quarter: 2012Q4

REPORT INFORMATION
  Report Type: 
  Country: US (occurrence: US)
  Receive Date: 20121026
  Receipt Date: 20121026
  Transmission Date: 20130627
  Serious: Yes (Other)
  Sender: FDA-Public Use
  Company Number: US-US-EMD SERONO, INC.-7168929

PATIENT
  Age: 42 Year
  Sex: Male

DRUGS (7)
  1. EGRIFTA [Suspect]
     Indication: LIPODYSTROPHY ACQUIRED
     Dates: start: 20120828, end: 201209
  2. INSULIN [Concomitant]
     Indication: DIABETES MELLITUS
  3. AMLODIPINE [Concomitant]
     Indication: HYPERTENSION
  4. LIPITOR [Concomitant]
     Indication: HYPERLIPIDAEMIA
  5. FUROSEMIDE [Concomitant]
     Indication: HYPERTENSION
  6. HUMALOG [Concomitant]
     Indication: TYPE 1 DIABETES MELLITUS
  7. SYNTHROID [Concomitant]
     Indication: HYPOTHYROIDISM

REACTIONS (1)
  - Diabetes mellitus [Recovered/Resolved]
